FAERS Safety Report 21365744 (Version 1)
Quarter: 2022Q3

REPORT INFORMATION
  Report Type: Other
  Country: NL (occurrence: GR)
  Receive Date: 20220922
  Receipt Date: 20220922
  Transmission Date: 20221026
  Serious: Yes (Other)
  Sender: FDA-Public Use
  Company Number: None

PATIENT

DRUGS (5)
  1. PITAVASTATIN [Suspect]
     Active Substance: PITAVASTATIN
     Indication: Dyslipidaemia
     Dosage: 1 DF, QD
     Route: 048
     Dates: start: 20060901, end: 20220801
  2. EZETIMIBE [Suspect]
     Active Substance: EZETIMIBE
     Indication: Dyslipidaemia
     Dosage: 1 DF, QD
     Route: 048
     Dates: start: 20060901, end: 20220801
  3. LIPITOR [Suspect]
     Active Substance: ATORVASTATIN CALCIUM
     Indication: Dyslipidaemia
     Dosage: 1 DF, QD
     Route: 048
     Dates: start: 20060901, end: 20220801
  4. SIMVASTATIN [Suspect]
     Active Substance: SIMVASTATIN
     Indication: Dyslipidaemia
     Dosage: 1 DF, QD
     Route: 048
     Dates: start: 20060901, end: 20220801
  5. IRBESARTAN [Concomitant]
     Active Substance: IRBESARTAN
     Indication: Product used for unknown indication

REACTIONS (3)
  - Glomerulonephritis [Recovered/Resolved]
  - Myositis [Recovered/Resolved]
  - Myalgia [Recovered/Resolved]

NARRATIVE: CASE EVENT DATE: 20060901
